FAERS Safety Report 9936852 (Version 1)
Quarter: 2014Q1

REPORT INFORMATION
  Report Type: Spontaneous
  Country: US (occurrence: None)
  Receive Date: 20140115
  Receipt Date: 20140115
  Transmission Date: 20141002
  Serious: Yes (Death)
  Sender: FDA-Public Use
  Company Number: 2013US002694

PATIENT
  Age: 37 Year
  Sex: Male

DRUGS (2)
  1. ICLUSIG (PONATINIB) TABLET, 15MG [Suspect]
     Indication: ACUTE LYMPHOCYTIC LEUKAEMIA
     Route: 048
  2. ICLUSIG (PONATINIB) TABLET, 15MG [Suspect]
     Indication: CHROMOSOME ANALYSIS ABNORMAL
     Route: 048

REACTIONS (1)
  - Leukaemia [None]
